FAERS Safety Report 7917630-2 (Version None)
Quarter: 2011Q4

REPORT INFORMATION
  Report Type: 
  Country: None (occurrence: None)
  Receive Date: 20111116
  Receipt Date: 20111104
  Transmission Date: 20120403
  Serious: Yes (Other)
  Sender: FDA-Public Use
  Company Number: US-ELI_LILLY_AND_COMPANY-US201111003006

PATIENT
  Age: 34 Year
  Sex: Female

DRUGS (4)
  1. HYDROCODONE BITARTRATE [Concomitant]
  2. CYMBALTA [Suspect]
     Indication: DEPRESSION
     Dosage: 60 MG, QD
     Dates: start: 20110501, end: 20111102
  3. XANAX [Concomitant]
  4. SOMA [Concomitant]

REACTIONS (5)
  - PAIN [None]
  - INTERVERTEBRAL DISC OPERATION [None]
  - ANXIETY [None]
  - TEARFULNESS [None]
  - ANGER [None]
